FAERS Safety Report 26062161 (Version 1)
Quarter: 2025Q4

REPORT INFORMATION
  Report Type: Spontaneous
  Country: JP (occurrence: JP)
  Receive Date: 20251119
  Receipt Date: 20251119
  Transmission Date: 20260117
  Serious: Yes (Other)
  Sender: AMGEN
  Company Number: JP-AMGEN-JPNSP2025226794

PATIENT

DRUGS (2)
  1. BLINCYTO [Suspect]
     Active Substance: BLINATUMOMAB
     Indication: B precursor type acute leukaemia
     Dosage: UNK, DRIP INFUSION
     Route: 040
  2. BLINCYTO [Suspect]
     Active Substance: BLINATUMOMAB
     Dosage: UNK, DRIP INFUSION, MEDICATION WAS RESUMED
     Route: 040

REACTIONS (2)
  - Tumour pseudoprogression [Recovered/Resolved]
  - Cytokine release syndrome [Recovered/Resolved]
